FAERS Safety Report 16679182 (Version 1)
Quarter: 2019Q3

REPORT INFORMATION
  Report Type: Other
  Country: DE (occurrence: DE)
  Receive Date: 20190807
  Receipt Date: 20190807
  Transmission Date: 20191004
  Serious: Yes (Other)
  Sender: FDA-Public Use
  Company Number: DE-TOPROL ACQUISITION LLC-2019-TOP-000774

PATIENT
  Age: 65 Year
  Sex: Male
  Weight: 59 kg

DRUGS (1)
  1. METOPROLOL SUCCINATE. [Suspect]
     Active Substance: METOPROLOL SUCCINATE
     Indication: ATRIAL FIBRILLATION
     Dosage: 47.5 MG, UNK
     Route: 048

REACTIONS (6)
  - Pulse abnormal [Unknown]
  - Arrhythmia [Unknown]
  - Renal cancer [Unknown]
  - Malaise [Unknown]
  - Hypotension [Unknown]
  - Metastases to lung [Unknown]
